FAERS Safety Report 6977321-1 (Version None)
Quarter: 2010Q3

REPORT INFORMATION
  Report Type: 
  Country: None (occurrence: None)
  Receive Date: 20100910
  Receipt Date: 20100706
  Transmission Date: 20110219
  Serious: Yes (Other)
  Sender: FDA-Public Use
  Company Number: PHHY2010US44424

PATIENT
  Sex: Male

DRUGS (2)
  1. AFINITOR [Suspect]
     Indication: MALIGNANT URINARY TRACT NEOPLASM
     Dosage: 5 MG
     Route: 048
     Dates: start: 20100601
  2. AFINITOR [Suspect]
     Dosage: 5 MG EVERY OTHER DAY

REACTIONS (9)
  - BENIGN GASTROINTESTINAL NEOPLASM [None]
  - BODY TEMPERATURE INCREASED [None]
  - COUGH [None]
  - DIARRHOEA [None]
  - EATING DISORDER [None]
  - MUCOSAL INFLAMMATION [None]
  - ORAL MUCOSAL ERYTHEMA [None]
  - PLATELET COUNT INCREASED [None]
  - SINUS HEADACHE [None]
